FAERS Safety Report 6271820-6 (Version None)
Quarter: 2009Q3

REPORT INFORMATION
  Report Type: 
  Country: None (occurrence: None)
  Receive Date: 20090717
  Receipt Date: 20090706
  Transmission Date: 20100115
  Serious: Yes (Hospitalization)
  Sender: FDA-Public Use
  Company Number: FR-PFIZER INC-2009164727

PATIENT
  Age: 71 Year

DRUGS (1)
  1. ATARAX [Suspect]
     Indication: ANXIETY
     Dosage: 25 MG, 3X/DAY
     Route: 048
     Dates: start: 20081117, end: 20081128

REACTIONS (2)
  - HYPERSENSITIVITY [None]
  - URINARY RETENTION [None]
